FAERS Safety Report 19436119 (Version 2)
Quarter: 2022Q4

REPORT INFORMATION
  Report Type: Spontaneous
  Country: CA (occurrence: CA)
  Receive Date: 20210618
  Receipt Date: 20221114
  Transmission Date: 20230112
  Serious: Yes (Hospitalization, Other)
  Sender: FDA-Public Use
  Company Number: None

PATIENT
  Age: 60 Year
  Sex: Female

DRUGS (4)
  1. GEMCITABINE [Suspect]
     Active Substance: GEMCITABINE
     Indication: Pancreatic carcinoma
     Dosage: 1 EVERY 1 MONTHS, INJECTION FOR INFUSION
     Route: 042
  2. ABRAXANE [Suspect]
     Active Substance: PACLITAXEL
     Indication: Pancreatic carcinoma
     Dosage: POWDER FOR SUSPENSION INTRAVENOUS?1 EVERY 1 MONTHS
     Route: 042
  3. DURVALUMAB [Suspect]
     Active Substance: DURVALUMAB
     Indication: Pancreatic carcinoma
     Dosage: 1 EVERY 1 MONTHS, INJECTION FOR INFUSION
     Route: 042
  4. TREMELIMUMAB [Suspect]
     Active Substance: TREMELIMUMAB
     Indication: Pancreatic carcinoma
     Dosage: 1 EVERY 1 MONTHS, INJECTION FOR INFUSION I
     Route: 042

REACTIONS (3)
  - Biliary tract infection [Recovered/Resolved with Sequelae]
  - Product use issue [Unknown]
  - Intentional product use issue [Unknown]
